FAERS Safety Report 7085740-0 (Version None)
Quarter: 2010Q4

REPORT INFORMATION
  Report Type: 
  Country: None (occurrence: None)
  Receive Date: 20101105
  Receipt Date: 20101026
  Transmission Date: 20110411
  Serious: Yes (Other)
  Sender: FDA-Public Use
  Company Number: CZ-PFIZER INC-2010135929

PATIENT
  Age: 12 Year
  Sex: Male

DRUGS (5)
  1. DOXORUBICIN HCL [Suspect]
  2. METHOTREXATE SODIUM [Suspect]
  3. VINCRISTINE SULFATE [Suspect]
  4. DEXAMETHASONE [Suspect]
  5. ASPARAGINASE [Suspect]

REACTIONS (1)
  - PROGRESSIVE MULTIFOCAL LEUKOENCEPHALOPATHY [None]
